FAERS Safety Report 14584171 (Version 1)
Quarter: 2018Q1

REPORT INFORMATION
  Report Type: Spontaneous
  Country: US (occurrence: US)
  Receive Date: 20180228
  Receipt Date: 20180228
  Transmission Date: 20180509
  Serious: No
  Sender: FDA-Public Use
  Company Number: US-ASTRAZENECA-2018SE07810

PATIENT
  Age: 25383 Day
  Sex: Male
  Weight: 120.2 kg

DRUGS (2)
  1. ASPIRIN. [Concomitant]
     Active Substance: ASPIRIN
     Indication: THROMBOSIS
     Route: 048
     Dates: start: 20180103
  2. BRILINTA [Suspect]
     Active Substance: TICAGRELOR
     Indication: STENT PLACEMENT
     Route: 048
     Dates: start: 20180103

REACTIONS (8)
  - Nervous system disorder [Unknown]
  - Nervousness [Unknown]
  - Blood urine present [Unknown]
  - Anxiety [Unknown]
  - Increased tendency to bruise [Unknown]
  - Aggression [Unknown]
  - Epistaxis [Not Recovered/Not Resolved]
  - Chromaturia [Unknown]

NARRATIVE: CASE EVENT DATE: 20180103
